FAERS Safety Report 6954267-6 (Version None)
Quarter: 2010Q3

REPORT INFORMATION
  Report Type: 
  Country: None (occurrence: None)
  Receive Date: 20100829
  Receipt Date: 20100714
  Transmission Date: 20110219
  Serious: No
  Sender: FDA-Public Use
  Company Number: US-ABBOTT-10P-163-0657171-00

PATIENT
  Sex: Male

DRUGS (6)
  1. NIASPAN [Suspect]
     Indication: HYPERLIPIDAEMIA
     Dates: start: 20070101, end: 20100601
  2. NIASPAN [Suspect]
     Dates: end: 20100601
  3. SIMCOR [Suspect]
     Indication: HYPERLIPIDAEMIA
     Dosage: 1000/20MG AT NIGHT
  4. PLAVIX [Concomitant]
     Indication: PRODUCT USED FOR UNKNOWN INDICATION
  5. BETA BLOCKER [Concomitant]
     Indication: PRODUCT USED FOR UNKNOWN INDICATION
  6. ASPIRIN [Concomitant]
     Indication: PRODUCT USED FOR UNKNOWN INDICATION

REACTIONS (2)
  - FLUSHING [None]
  - POLLAKIURIA [None]
